FAERS Safety Report 20664373 (Version 2)
Quarter: 2022Q4

REPORT INFORMATION
  Report Type: Spontaneous
  Country: US (occurrence: None)
  Receive Date: 20220401
  Receipt Date: 20221111
  Transmission Date: 20230113
  Serious: No
  Sender: FDA-Public Use
  Company Number: 2022A122606

PATIENT
  Age: 49 Year
  Sex: Female
  Weight: 95.3 kg

DRUGS (1)
  1. FASENRA [Suspect]
     Active Substance: BENRALIZUMAB
     Indication: Asthma
     Route: 055
     Dates: start: 2019

REACTIONS (3)
  - Rash erythematous [Recovered/Resolved]
  - Rash pruritic [Unknown]
  - Rash macular [Unknown]

NARRATIVE: CASE EVENT DATE: 20190101
